FAERS Safety Report 7374210-8 (Version None)
Quarter: 2011Q1

REPORT INFORMATION
  Report Type: 
  Country: None (occurrence: None)
  Receive Date: 20110325
  Receipt Date: 20110310
  Transmission Date: 20110831
  Serious: Yes (Death, Other)
  Sender: FDA-Public Use
  Company Number: IT-CELGENEUS-083-21880-11031361

PATIENT
  Sex: Male

DRUGS (5)
  1. REVLIMID [Suspect]
     Dosage: 10 MILLIGRAM
     Route: 048
     Dates: start: 20091215, end: 20091229
  2. OMNIC [Concomitant]
     Dosage: 1 DOSAGE FORMS
     Route: 048
  3. CYTARABINE [Suspect]
     Dosage: 40 MILLIGRAM
     Route: 058
     Dates: start: 20091215, end: 20091229
  4. ZYLORIC [Concomitant]
     Dosage: 1 TABLET
     Route: 048
  5. TRANEX [Concomitant]
     Dosage: 6 DOSAGE FORMS
     Route: 048

REACTIONS (1)
  - SEPTIC SHOCK [None]
